FAERS Safety Report 9193125 (Version 1)
Quarter: 2013Q1

REPORT INFORMATION
  Report Type: Spontaneous
  Country: US (occurrence: US)
  Receive Date: 20130327
  Receipt Date: 20130327
  Transmission Date: 20140127
  Serious: No
  Sender: FDA-Public Use
  Company Number: US-PFIZER INC-2013095318

PATIENT
  Age: 58 Year
  Sex: Female
  Weight: 86.17 kg

DRUGS (5)
  1. EFFEXOR XR [Suspect]
     Indication: BIPOLAR DISORDER
     Dosage: 37.5 MG, 1X/DAY
     Route: 048
  2. EFFEXOR XR [Suspect]
     Indication: GENERALISED ANXIETY DISORDER
     Dosage: 37.5 MG, 2X/DAY
     Route: 048
  3. EFFEXOR XR [Suspect]
     Indication: AGORAPHOBIA
     Dosage: 75 MG, 1X/DAY
     Route: 048
  4. EFFEXOR XR [Suspect]
     Dosage: 75 MG, 5X/DAY
     Route: 048
  5. EFFEXOR XR [Suspect]
     Dosage: UNK
     Route: 048

REACTIONS (4)
  - Depression [Unknown]
  - Derealisation [Unknown]
  - Off label use [Unknown]
  - Inappropriate schedule of drug administration [Unknown]
